FAERS Safety Report 12564369 (Version 1)
Quarter: 2016Q3

REPORT INFORMATION
  Report Type: Spontaneous
  Country: US (occurrence: None)
  Receive Date: 20160715
  Receipt Date: 20160715
  Transmission Date: 20161109
  Serious: No
  Sender: FDA-Public Use
  Company Number: None

PATIENT
  Age: 51 Year
  Sex: Male
  Weight: 83.92 kg

DRUGS (2)
  1. ASPRIN [Concomitant]
     Active Substance: ASPIRIN
  2. D-AMPHETAMINE SALT COM XR 30NG, 30 MG [Suspect]
     Active Substance: AMPHETAMINE ASPARTATE\AMPHETAMINE SULFATE\DEXTROAMPHETAMINE SACCHARATE\DEXTROAMPHETAMINE SULFATE
     Indication: ATTENTION DEFICIT/HYPERACTIVITY DISORDER
     Route: 048
     Dates: start: 20160504

REACTIONS (4)
  - Drug ineffective [None]
  - Product substitution issue [None]
  - Drug effect incomplete [None]
  - Fatigue [None]

NARRATIVE: CASE EVENT DATE: 20160627
